FAERS Safety Report 24626844 (Version 2)
Quarter: 2024Q4

REPORT INFORMATION
  Report Type: Spontaneous
  Country: US (occurrence: US)
  Receive Date: 20241115
  Receipt Date: 20241122
  Transmission Date: 20250114
  Serious: No
  Sender: NOVO NORDISK
  Company Number: US-NOVOPROD-1224813

PATIENT
  Age: 76 Year
  Sex: Female

DRUGS (3)
  1. TRESIBA [Suspect]
     Active Substance: INSULIN DEGLUDEC
     Indication: Type 2 diabetes mellitus
     Dosage: 6 UNITS AT 10 AM, 2 UNITS AT 10PM
     Route: 058
     Dates: start: 20240506, end: 20240508
  2. NOVOLOG [Suspect]
     Active Substance: INSULIN ASPART
     Indication: Type 2 diabetes mellitus
     Dosage: 3 UNITS AT BREAKFAST, 5 UNITS AT LUNCH, 5 UNITS AT DINNER
     Route: 058
  3. LANTUS [Concomitant]
     Active Substance: INSULIN GLARGINE
     Indication: Diabetes mellitus
     Dosage: 6 UNITS AT MORNING, 2 UNITS AT NIGHT

REACTIONS (3)
  - Dizziness [Recovered/Resolved]
  - Feeling abnormal [Recovered/Resolved]
  - Blood glucose increased [Recovered/Resolved]

NARRATIVE: CASE EVENT DATE: 20240506
